FAERS Safety Report 8416749-X (Version None)
Quarter: 2012Q2

REPORT INFORMATION
  Report Type: 
  Country: None (occurrence: None)
  Receive Date: 20120530
  Receipt Date: 20120514
  Transmission Date: 20120825
  Serious: Yes (Hospitalization)
  Sender: FDA-Public Use
  Company Number: 2012VX002325

PATIENT
  Age: 71 Year
  Sex: Male

DRUGS (3)
  1. TOLCAPONE (TOLCAPONE) [Suspect]
     Indication: PARKINSON'S DISEASE
     Dosage: 100 MG; TID; PO
     Route: 048
     Dates: start: 20111201, end: 20120319
  2. MODOPAR (MADOPAR) [Suspect]
     Indication: PRODUCT USED FOR UNKNOWN INDICATION
     Dosage: PO
     Route: 048
  3. NEUPRO [Suspect]
     Indication: PRODUCT USED FOR UNKNOWN INDICATION
     Dosage: PO
     Route: 048

REACTIONS (4)
  - ABNORMAL BEHAVIOUR [None]
  - AGGRESSION [None]
  - IRRITABILITY [None]
  - CONFUSIONAL STATE [None]
